FAERS Safety Report 12380588 (Version 1)
Quarter: 2016Q2

REPORT INFORMATION
  Report Type: Spontaneous
  Country: ES (occurrence: ES)
  Receive Date: 20160518
  Receipt Date: 20160518
  Transmission Date: 20160815
  Serious: Yes (Other)
  Sender: FDA-Public Use
  Company Number: ES-BRISTOL-MYERS SQUIBB COMPANY-BMS-2016-035749

PATIENT
  Age: 79 Year
  Sex: Female

DRUGS (7)
  1. ADIRO [Concomitant]
     Active Substance: ASPIRIN
     Indication: PRODUCT USED FOR UNKNOWN INDICATION
     Dosage: 100 MG, QD
     Route: 048
     Dates: start: 20100101
  2. TRIGON DEPOT [Suspect]
     Active Substance: TRIAMCINOLONE ACETONIDE
     Indication: BACK PAIN
     Dosage: UNK
     Route: 008
     Dates: start: 20160222, end: 20160222
  3. ATROVENT [Suspect]
     Active Substance: IPRATROPIUM BROMIDE
     Indication: BRONCHITIS
     Dosage: 2 MLG ; 20 BLISTERS OF 2 ML
     Route: 065
     Dates: start: 20160208, end: 20160209
  4. SALBUTAMOL [Suspect]
     Active Substance: ALBUTEROL
     Indication: BRONCHITIS
     Dosage: 2 ML, UNK, 20 BLISTERS OF 2 ML
     Route: 065
     Dates: start: 20160208, end: 20160209
  5. PULMICORT TURBUHALER [Suspect]
     Active Substance: BUDESONIDE
     Indication: BRONCHITIS
     Dosage: 5 BLISTERS OF 2 ML
     Route: 065
     Dates: start: 20160208, end: 20160209
  6. EZETIMIBE. [Concomitant]
     Active Substance: EZETIMIBE
     Indication: PRODUCT USED FOR UNKNOWN INDICATION
     Dosage: 10 MG, QD
     Route: 048
     Dates: start: 20150601
  7. LANSOPRAZOLE. [Concomitant]
     Active Substance: LANSOPRAZOLE
     Indication: PROPHYLAXIS
     Dosage: 15 MG, QD
     Route: 048
     Dates: start: 20150701

REACTIONS (5)
  - Tremor [Recovered/Resolved]
  - Condition aggravated [Unknown]
  - Incorrect route of drug administration [Unknown]
  - Off label use [Unknown]
  - Hypertensive crisis [Recovered/Resolved]

NARRATIVE: CASE EVENT DATE: 201602
